FAERS Safety Report 7418558-7 (Version None)
Quarter: 2011Q2

REPORT INFORMATION
  Report Type: 
  Country: None (occurrence: None)
  Receive Date: 20110415
  Receipt Date: 20110405
  Transmission Date: 20111010
  Serious: Yes (Other)
  Sender: FDA-Public Use
  Company Number: PHHY2011US28680

PATIENT
  Sex: Male

DRUGS (1)
  1. TASIGNA [Suspect]
     Dosage: UNK
     Route: 048

REACTIONS (3)
  - FATIGUE [None]
  - WHITE BLOOD CELL COUNT DECREASED [None]
  - HAEMATOLOGY TEST ABNORMAL [None]
